FAERS Safety Report 6068354-0 (Version None)
Quarter: 2009Q1

REPORT INFORMATION
  Report Type: 
  Country: None (occurrence: None)
  Receive Date: 20090206
  Receipt Date: 20090129
  Transmission Date: 20090719
  Serious: No
  Sender: FDA-Public Use
  Company Number: CH-EISAI MEDICAL RESEARCH-E2020-04040-SPO-CH

PATIENT
  Sex: Female
  Weight: 53.5 kg

DRUGS (2)
  1. ARICEPT [Suspect]
     Indication: DEMENTIA ALZHEIMER'S TYPE
     Route: 048
     Dates: start: 20040101
  2. IMOVANE [Concomitant]
     Route: 048

REACTIONS (2)
  - FEELING HOT [None]
  - HEADACHE [None]
